FAERS Safety Report 15883554 (Version 1)
Quarter: 2019Q1

REPORT INFORMATION
  Report Type: Spontaneous
  Country: US (occurrence: US)
  Receive Date: 20190129
  Receipt Date: 20190129
  Transmission Date: 20190417
  Serious: No
  Sender: FDA-Public Use
  Company Number: US-TEVA-2019-US-998233

PATIENT

DRUGS (1)
  1. MIMVEY [Suspect]
     Active Substance: ESTRADIOL\NORETHINDRONE ACETATE
     Dosage: MIMVEY,1 MG / 0.5 MG
     Route: 065

REACTIONS (3)
  - Loss of personal independence in daily activities [Unknown]
  - Menopausal symptoms [Unknown]
  - Drug ineffective [Unknown]
